FAERS Safety Report 21714655 (Version 4)
Quarter: 2025Q3

REPORT INFORMATION
  Report Type: Spontaneous
  Country: EU (occurrence: EU)
  Receive Date: 20221212
  Receipt Date: 20250819
  Transmission Date: 20251021
  Serious: Yes (Hospitalization)
  Sender: ELI LILLY AND COMPANY
  Company Number: EU-ELI_LILLY_AND_COMPANY-NL202212000036

PATIENT
  Age: 85 Year
  Sex: Female

DRUGS (2)
  1. RETEVMO [Suspect]
     Active Substance: SELPERCATINIB
     Indication: Non-small cell lung cancer
     Dosage: 80 MG, BID
     Route: 048
     Dates: start: 20220706
  2. RETEVMO [Suspect]
     Active Substance: SELPERCATINIB
     Indication: Metastases to central nervous system

REACTIONS (5)
  - Seizure [Recovered/Resolved]
  - Pericarditis malignant [Not Recovered/Not Resolved]
  - Hypocalcaemia [Unknown]
  - Hypomagnesaemia [Unknown]
  - Diarrhoea [Unknown]

NARRATIVE: CASE EVENT DATE: 20221121
